FAERS Safety Report 25425820 (Version 6)
Quarter: 2025Q4

REPORT INFORMATION
  Report Type: Report from Study
  Country: US (occurrence: US)
  Receive Date: 20250611
  Receipt Date: 20251117
  Transmission Date: 20260118
  Serious: Yes (Other)
  Sender: MALLINCKRODT
  Company Number: US-MALLINCKRODT-MNK202500987

PATIENT
  Sex: Male

DRUGS (5)
  1. CORTICOTROPIN [Suspect]
     Active Substance: CORTICOTROPIN
     Indication: Uveitis
     Dosage: 80 UNITS
     Dates: start: 20230309
  2. JARDIANCE [Suspect]
     Active Substance: EMPAGLIFLOZIN
     Indication: Blood glucose increased
     Dosage: UNKNOWN
  3. HUMIRA [Concomitant]
     Active Substance: ADALIMUMAB
     Dosage: UNKNOWN
  4. ASPIRIN [Concomitant]
     Active Substance: ASPIRIN
  5. GABAPENTIN [Concomitant]
     Active Substance: GABAPENTIN
     Dosage: UNKNOWN

REACTIONS (12)
  - Spinal stenosis [Not Recovered/Not Resolved]
  - Arthritis [Recovered/Resolved]
  - Weight decreased [Unknown]
  - Hypoaesthesia [Not Recovered/Not Resolved]
  - Appetite disorder [Unknown]
  - Blood glucose decreased [Unknown]
  - Blood testosterone decreased [Unknown]
  - Red blood cell count increased [Unknown]
  - Pollakiuria [Unknown]
  - Vitamin D decreased [Unknown]
  - Headache [Unknown]
  - Blood glucose increased [Recovered/Resolved]
